FAERS Safety Report 20480584 (Version 4)
Quarter: 2022Q2

REPORT INFORMATION
  Report Type: Spontaneous
  Country: US (occurrence: US)
  Receive Date: 20220216
  Receipt Date: 20220510
  Transmission Date: 20220721
  Serious: Yes (Hospitalization, Other)
  Sender: FDA-Public Use
  Company Number: US-INCYTE CORPORATION-2022IN001574

PATIENT

DRUGS (7)
  1. JAKAFI [Suspect]
     Active Substance: RUXOLITINIB
     Indication: Myelofibrosis
     Dosage: 5 MILLIGRAM, BID
     Route: 048
     Dates: start: 20211124, end: 20220201
  2. JAKAFI [Suspect]
     Active Substance: RUXOLITINIB
     Dosage: 5 MILLIGRAM, BID
     Route: 048
     Dates: start: 20220204, end: 20220215
  3. JAKAFI [Suspect]
     Active Substance: RUXOLITINIB
     Dosage: 10 MILLIGRAM, BID
     Route: 065
     Dates: start: 20220216
  4. PELABRESIB MONOHYDRATE [Suspect]
     Active Substance: PELABRESIB MONOHYDRATE
     Indication: Myelofibrosis
     Dosage: UNK
     Route: 065
     Dates: start: 20211124, end: 20220201
  5. PELABRESIB MONOHYDRATE [Suspect]
     Active Substance: PELABRESIB MONOHYDRATE
     Dosage: 75 MILLIGRAM
     Route: 065
     Dates: start: 20220216, end: 20220308
  6. PELABRESIB MONOHYDRATE [Suspect]
     Active Substance: PELABRESIB MONOHYDRATE
     Dosage: 100 MILLIGRAM, QD
     Route: 065
     Dates: start: 20220309
  7. ONDANSETRON [Concomitant]
     Active Substance: ONDANSETRON
     Indication: Product used for unknown indication
     Dosage: UNK
     Route: 065
     Dates: start: 20211124

REACTIONS (2)
  - Pneumonia [Recovered/Resolved]
  - Cytopenia [Recovered/Resolved]

NARRATIVE: CASE EVENT DATE: 20220201
